FAERS Safety Report 7279804-6 (Version None)
Quarter: 2010Q4

REPORT INFORMATION
  Report Type: 
  Country: None (occurrence: None)
  Receive Date: 20101206
  Receipt Date: 20100823
  Transmission Date: 20110411
  Serious: Yes (Other)
  Sender: FDA-Public Use
  Company Number: 2010SP045909

PATIENT
  Sex: Female

DRUGS (8)
  1. SAPHRIS [Suspect]
     Indication: PRODUCT USED FOR UNKNOWN INDICATION
     Dosage: 5 MG; ONCE; SL
     Route: 060
     Dates: start: 20100615, end: 20100616
  2. RISPERDAL [Concomitant]
  3. ZOLOFT [Concomitant]
  4. WELLBUTRIN [Concomitant]
  5. MELATONIN [Concomitant]
  6. ALBUTEROL [Concomitant]
  7. HUMULIN 70/30 [Concomitant]
  8. NOVOLIN R [Concomitant]

REACTIONS (1)
  - LOSS OF CONSCIOUSNESS [None]
